FAERS Safety Report 6966202-5 (Version None)
Quarter: 2010Q3

REPORT INFORMATION
  Report Type: 
  Country: None (occurrence: None)
  Receive Date: 20100901
  Receipt Date: 20100810
  Transmission Date: 20110219
  Serious: Yes (Other)
  Sender: FDA-Public Use
  Company Number: WAES 1008USA01775

PATIENT
  Age: 58 Year
  Sex: Male
  Weight: 83.0083 kg

DRUGS (13)
  1. PRINIVIL [Suspect]
     Indication: HYPERTENSION
     Dosage: 10 MG DAILY PO
     Route: 048
     Dates: start: 20090827, end: 20100211
  2. INJ IM02055 UNK [Suspect]
     Indication: NON-SMALL CELL LUNG CANCER
     Dosage: SC
     Route: 058
     Dates: start: 20091123, end: 20100202
  3. TARCEVA [Suspect]
     Indication: NON-SMALL CELL LUNG CANCER
     Dosage: 150 MG DAILY PO
     Route: 048
     Dates: start: 20091123
  4. AVASTIN [Suspect]
     Indication: NON-SMALL CELL LUNG CANCER
     Dosage: UNK Q3W IV
     Route: 042
     Dates: start: 20091123, end: 20100125
  5. CLARITIN [Concomitant]
  6. CLEOCIN T [Concomitant]
  7. COMTREX COLD [Concomitant]
  8. IMODIUM [Concomitant]
  9. SENOKOT [Concomitant]
  10. TYLENOL [Concomitant]
  11. AMLODIPINE [Concomitant]
  12. GABAPENTIN [Concomitant]
  13. OXYCODONE [Concomitant]

REACTIONS (5)
  - ANGIOEDEMA [None]
  - ENLARGED UVULA [None]
  - ORAL DISORDER [None]
  - THROAT IRRITATION [None]
  - THROAT TIGHTNESS [None]
